FAERS Safety Report 24647966 (Version 1)
Quarter: 2024Q4

REPORT INFORMATION
  Report Type: Spontaneous
  Country: CN (occurrence: CN)
  Receive Date: 20241121
  Receipt Date: 20241121
  Transmission Date: 20250115
  Serious: Yes (Other)
  Sender: FERRING
  Company Number: CN-FERRINGPH-2024FE05330

PATIENT

DRUGS (1)
  1. FIRMAGON [Suspect]
     Active Substance: DEGARELIX ACETATE
     Indication: Prostate cancer
     Dosage: 80 MG
     Route: 058
     Dates: start: 20210924, end: 20241025

REACTIONS (3)
  - Loss of consciousness [Unknown]
  - Anal incontinence [Unknown]
  - Urinary incontinence [Unknown]

NARRATIVE: CASE EVENT DATE: 20240918
